FAERS Safety Report 8712934 (Version 4)
Quarter: 2012Q4

REPORT INFORMATION
  Report Type: 
  Country: GB (occurrence: GB)
  Receive Date: 20120808
  Receipt Date: 20121008
  Transmission Date: 20130627
  Serious: Yes (Hospitalization)
  Sender: FDA-Public Use
  Company Number: GB-B.I. PHARMACEUTICALS,INC./RIDGEFIELD-2012-UK-01013UK

PATIENT
  Age: 76 Year
  Sex: Male
  Weight: 93 kg

DRUGS (14)
  1. PRADAXA [Suspect]
     Indication: ATRIAL FIBRILLATION
     Dosage: 300 mg
     Route: 048
     Dates: start: 20120221, end: 20120515
  2. BISOPROLOL [Concomitant]
     Indication: CARDIAC FAILURE
     Dosage: 2.5 mg
     Route: 048
     Dates: start: 20110501, end: 201205
  3. CO-CODAMOL [Concomitant]
     Indication: PAIN
     Dosage: 8 anz
     Route: 048
     Dates: start: 201201, end: 201205
  4. METFORMIN [Concomitant]
     Indication: DIABETES MELLITUS
     Dosage: 2 BD
     Route: 048
     Dates: start: 201201, end: 201205
  5. ATORVASTATIN [Concomitant]
     Indication: LIPIDS
     Dosage: 20 mg
     Route: 048
     Dates: start: 201201, end: 201205
  6. SITAGLIPTIN [Concomitant]
     Indication: DIABETES MELLITUS
     Dosage: 100 mg
     Route: 048
     Dates: start: 201201, end: 201205
  7. LACIDIPINE [Concomitant]
     Indication: BLOOD PRESSURE
     Dosage: 4 mg
     Route: 048
     Dates: start: 201201, end: 201205
  8. CANDESARTAN [Concomitant]
     Indication: BLOOD PRESSURE
     Dosage: 16 mg
     Route: 048
     Dates: start: 201201, end: 201205
  9. CANDESARTAN [Concomitant]
     Indication: CARDIAC FAILURE
  10. DIGOXIN [Concomitant]
     Dosage: 125 mcg
     Dates: start: 201201, end: 201205
  11. BENDROFLUMETHIAZIDE [Concomitant]
     Dosage: 2.5 mg
     Dates: start: 201201, end: 201205
  12. GLIMEPIRIDE [Concomitant]
     Dosage: 4 mg
     Dates: start: 201201, end: 201205
  13. LEVOTHYROXINE [Concomitant]
     Dosage: 100 mcg
     Dates: start: 201201, end: 201205
  14. ASPIRIN [Concomitant]
     Indication: MYOCARDIAL ISCHAEMIA

REACTIONS (1)
  - Acute myocardial infarction [Not Recovered/Not Resolved]
